FAERS Safety Report 8160314-9 (Version None)
Quarter: 2012Q1

REPORT INFORMATION
  Report Type: 
  Country: None (occurrence: None)
  Receive Date: 20120223
  Receipt Date: 20120214
  Transmission Date: 20120608
  Serious: Yes (Other)
  Sender: FDA-Public Use
  Company Number: US-CELGENEUS-163-20785-12021693

PATIENT

DRUGS (7)
  1. MELPHALAN [Concomitant]
     Route: 065
  2. DEXAMETHASONE [Suspect]
     Indication: MULTIPLE MYELOMA
     Dosage: 20 MILLIGRAM/SQ. METER
     Route: 048
  3. HEPARIN [Concomitant]
     Indication: ANTICOAGULATION DRUG LEVEL
     Route: 065
  4. BORTEZOMIB [Suspect]
     Indication: MULTIPLE MYELOMA
     Dosage: 1.3 MILLIGRAM/SQ. METER
     Route: 041
  5. AUTOLOGOUS BLOOD STEM CELLS [Concomitant]
     Route: 065
  6. COUMADIN [Concomitant]
     Indication: ANTICOAGULATION DRUG LEVEL
  7. THALOMID [Suspect]
     Indication: MULTIPLE MYELOMA
     Dosage: 100MG INCREASED QD TO MAX 200MG
     Route: 048

REACTIONS (14)
  - BONE MARROW FAILURE [None]
  - DEEP VEIN THROMBOSIS [None]
  - OEDEMA [None]
  - CONSTIPATION [None]
  - FATIGUE [None]
  - RASH [None]
  - INFECTION [None]
  - NEUROPATHY PERIPHERAL [None]
  - PNEUMONIA [None]
  - PULMONARY EMBOLISM [None]
  - INSOMNIA [None]
  - DRY SKIN [None]
  - DYSPEPSIA [None]
  - NO THERAPEUTIC RESPONSE [None]
